FAERS Safety Report 25008689 (Version 1)
Quarter: 2025Q1

REPORT INFORMATION
  Report Type: Report from Study
  Country: MX (occurrence: MX)
  Receive Date: 20250225
  Receipt Date: 20250225
  Transmission Date: 20250408
  Serious: Yes (Hospitalization, Other)
  Sender: NOVARTIS
  Company Number: MX-002147023-NVSC2024MX162890

PATIENT
  Sex: Female
  Weight: 52 kg

DRUGS (3)
  1. IMATINIB [Suspect]
     Active Substance: IMATINIB
     Indication: Chronic myeloid leukaemia
     Route: 048
  2. TASIGNA [Suspect]
     Active Substance: NILOTINIB
     Indication: Chronic myeloid leukaemia
     Dosage: 2 DOSAGE FORM, BID
     Route: 048
     Dates: end: 202412
  3. SCEMBLIX [Suspect]
     Active Substance: ASCIMINIB HYDROCHLORIDE
     Indication: Chronic myeloid leukaemia
     Dosage: 1 DOSAGE FORM, BID
     Route: 048
     Dates: start: 202412

REACTIONS (9)
  - Spleen disorder [Recovered/Resolved]
  - Movement disorder [Unknown]
  - Haemorrhage [Unknown]
  - Depressed mood [Unknown]
  - Asthenia [Not Recovered/Not Resolved]
  - Malignant splenic neoplasm [Unknown]
  - Immunodeficiency [Unknown]
  - Drug intolerance [Unknown]
  - Weight decreased [Recovered/Resolved]

NARRATIVE: CASE EVENT DATE: 20240101
